FAERS Safety Report 18406742 (Version 1)
Quarter: 2020Q4

REPORT INFORMATION
  Report Type: Report from Study
  Country: None (occurrence: US)
  Receive Date: 20201021
  Receipt Date: 20201021
  Transmission Date: 20210114
  Serious: Yes (Other)
  Sender: FDA-Public Use
  Company Number: US-ABBVIE-20K-163-3607725-00

PATIENT
  Age: 62 Year
  Sex: Female

DRUGS (1)
  1. HUMIRA [Suspect]
     Active Substance: ADALIMUMAB
     Indication: COLITIS ULCERATIVE
     Dosage: CITRATE FREE
     Route: 058

REACTIONS (5)
  - Trigeminal neuralgia [Not Recovered/Not Resolved]
  - Migraine [Unknown]
  - Dental care [Not Recovered/Not Resolved]
  - Stress [Unknown]
  - Fungal infection [Unknown]

NARRATIVE: CASE EVENT DATE: 2000
